FAERS Safety Report 11252127 (Version 1)
Quarter: 2015Q3

REPORT INFORMATION
  Report Type: Spontaneous
  Country: US (occurrence: US)
  Receive Date: 20150708
  Receipt Date: 20150708
  Transmission Date: 20151125
  Serious: No
  Sender: FDA-Public Use
  Company Number: US-ELI_LILLY_AND_COMPANY-US201304004195

PATIENT
  Sex: Male

DRUGS (2)
  1. GLUCAGON. [Suspect]
     Active Substance: GLUCAGON
  2. GLUCAGON. [Suspect]
     Active Substance: GLUCAGON

REACTIONS (2)
  - Choking [Unknown]
  - Hyperhidrosis [Unknown]
